FAERS Safety Report 14211614 (Version 2)
Quarter: 2017Q4

REPORT INFORMATION
  Report Type: Spontaneous
  Country: US (occurrence: US)
  Receive Date: 20171121
  Receipt Date: 20171219
  Transmission Date: 20180321
  Serious: Yes (Other)
  Sender: FDA-Public Use
  Company Number: US-MYLANLABS-2017M1073541

PATIENT
  Age: 23 Year
  Sex: Female

DRUGS (7)
  1. IBUPROFEN. [Concomitant]
     Active Substance: IBUPROFEN
     Indication: PAIN MANAGEMENT
     Dosage: 800MG, EVERY 8 HOURS
     Route: 048
  2. BUPIVACAINE. [Suspect]
     Active Substance: BUPIVACAINE
     Indication: CAESAREAN SECTION
  3. BUPIVACAINE MYLAN [Suspect]
     Active Substance: BUPIVACAINE
     Indication: CAESAREAN SECTION
     Dosage: BOLUS DOSE 2 ML
     Route: 065
  4. BUPRENORPHINE. [Suspect]
     Active Substance: BUPRENORPHINE
     Indication: PRODUCT USED FOR UNKNOWN INDICATION
     Dosage: 4 MG, TID
     Route: 065
  5. BUPIVACAINE MYLAN [Suspect]
     Active Substance: BUPIVACAINE
     Indication: SPINAL ANAESTHESIA
     Dosage: 0.0625% BUPIVACAINE AT 10 ML/H FOLLOWED BY BOLUS DOSE OF 2ML
     Route: 008
  6. BUPIVACAINE. [Suspect]
     Active Substance: BUPIVACAINE
     Indication: SPINAL ANAESTHESIA
     Dosage: 15 MG, FOLLOWED BY CONTROLLED EPIDURAL INFUSION WITH A BOLUS DOSE
     Route: 037
  7. KETOROLAC [Concomitant]
     Active Substance: KETOROLAC\KETOROLAC TROMETHAMINE
     Indication: PAIN MANAGEMENT
     Dosage: 30MG, EVERY 6 HOURS FOR 4 DOSES
     Route: 042

REACTIONS (5)
  - Maternal use of illicit drugs [Recovering/Resolving]
  - Drug abuse [Recovering/Resolving]
  - Maternal exposure during delivery [Recovered/Resolved]
  - Hyperaesthesia [Recovering/Resolving]
  - Muscular weakness [Unknown]
